FAERS Safety Report 16206390 (Version 2)
Quarter: 2019Q2

REPORT INFORMATION
  Report Type: Spontaneous
  Country: US (occurrence: US)
  Receive Date: 20190417
  Receipt Date: 20190528
  Transmission Date: 20190711
  Serious: Yes (Hospitalization, Other)
  Sender: FDA-Public Use
  Company Number: US-ELI_LILLY_AND_COMPANY-US201904006827

PATIENT
  Sex: Female

DRUGS (2)
  1. HUMALOG MIX75/25 [Suspect]
     Active Substance: INSULIN LISPRO
     Dosage: 82 IU, TID
     Route: 058
  2. HUMALOG MIX75/25 [Suspect]
     Active Substance: INSULIN LISPRO
     Indication: TYPE 2 DIABETES MELLITUS
     Dosage: 82 IU, TID
     Route: 058

REACTIONS (5)
  - Limb discomfort [Unknown]
  - Product storage error [Unknown]
  - Blood glucose increased [Recovering/Resolving]
  - Procedural pain [Not Recovered/Not Resolved]
  - Staphylococcal infection [Recovering/Resolving]
